FAERS Safety Report 6511141-7 (Version None)
Quarter: 2009Q4

REPORT INFORMATION
  Report Type: 
  Country: None (occurrence: None)
  Receive Date: 20091222
  Receipt Date: 20091221
  Transmission Date: 20100525
  Serious: Yes (Hospitalization, Disabling)
  Sender: FDA-Public Use
  Company Number: DE-WYE-G05187409

PATIENT
  Sex: Female

DRUGS (3)
  1. VENLAFAXINE HCL [Suspect]
     Indication: DEPRESSION
     Dosage: UNKOWN DAILY DOSE
     Route: 048
     Dates: start: 20080101, end: 20090101
  2. VENLAFAXINE HCL [Suspect]
     Dosage: UNKNOWN DAILY DOSE
     Route: 048
     Dates: start: 20090101, end: 20090101
  3. VENLAFAXINE HCL [Suspect]
     Dosage: DAILY DOSE WAS HALVED AND THEN GRADUALLY REDUCED
     Route: 048
     Dates: start: 20090101, end: 20090101

REACTIONS (10)
  - ACTIVITIES OF DAILY LIVING IMPAIRED [None]
  - BRONCHITIS CHRONIC [None]
  - DRUG WITHDRAWAL SYNDROME [None]
  - FEELING ABNORMAL [None]
  - HYPERHIDROSIS [None]
  - INTENTIONAL DRUG MISUSE [None]
  - PALPITATIONS [None]
  - PANIC DISORDER [None]
  - RIB FRACTURE [None]
  - VOMITING [None]
